FAERS Safety Report 4531991-6 (Version None)
Quarter: 2004Q4

REPORT INFORMATION
  Report Type: 
  Country: None (occurrence: None)
  Receive Date: 20041217
  Receipt Date: 20041208
  Transmission Date: 20050328
  Serious: Yes (Other)
  Sender: FDA-Public Use
  Company Number: 2004106106

PATIENT
  Age: 49 Year
  Sex: Female
  Weight: 52.1637 kg

DRUGS (1)
  1. NICOTROL [Suspect]
     Indication: SMOKING CESSATION THERAPY
     Dosage: 4-6 CARTRIGES DAILY, INHALATION
     Route: 055
     Dates: start: 20040520

REACTIONS (3)
  - ANXIETY [None]
  - CHEST DISCOMFORT [None]
  - DRUG ADDICT [None]
